FAERS Safety Report 5685483-1 (Version None)
Quarter: 2008Q1

REPORT INFORMATION
  Report Type: 
  Country: None (occurrence: None)
  Receive Date: 20080328
  Receipt Date: 20080317
  Transmission Date: 20080703
  Serious: Yes (Hospitalization)
  Sender: FDA-Public Use
  Company Number: US-BAYER-200817017NA

PATIENT
  Age: 46 Year
  Sex: Female
  Weight: 81 kg

DRUGS (4)
  1. MIRENA [Suspect]
     Indication: UTERINE HAEMORRHAGE
     Route: 015
     Dates: start: 20080102
  2. BETAHACOGNERIC [Concomitant]
  3. ZITHROMAX [Concomitant]
  4. CEFAPIRIN [Concomitant]

REACTIONS (7)
  - CHILLS [None]
  - CYSTITIS [None]
  - FALL [None]
  - PNEUMONIA [None]
  - PYREXIA [None]
  - VAGINAL DISCHARGE [None]
  - VAGINAL ODOUR [None]
